FAERS Safety Report 25613197 (Version 2)
Quarter: 2025Q3

REPORT INFORMATION
  Report Type: Spontaneous
  Country: JP (occurrence: JP)
  Receive Date: 20250728
  Receipt Date: 20250822
  Transmission Date: 20251020
  Serious: Yes (Hospitalization, Congenital Anomaly, Other)
  Sender: ROCHE
  Company Number: JP-ROCHE-10000349617

PATIENT
  Sex: Female

DRUGS (4)
  1. RITUXAN [Suspect]
     Active Substance: RITUXIMAB
     Indication: Product used for unknown indication
     Route: 064
  2. HYDROXYCHLOROQUINE [Suspect]
     Active Substance: HYDROXYCHLOROQUINE
     Indication: Product used for unknown indication
     Route: 064
  3. PREDNISOLONE [Suspect]
     Active Substance: PREDNISOLONE
     Indication: Product used for unknown indication
     Route: 064
  4. ACYCLOVIR [Suspect]
     Active Substance: ACYCLOVIR
     Indication: Product used for unknown indication
     Route: 064

REACTIONS (13)
  - Foetal exposure during pregnancy [Unknown]
  - Premature baby [Unknown]
  - Low birth weight baby [Recovered/Resolved]
  - Apgar score low [Recovered/Resolved]
  - Lymphopenia [Recovered/Resolved]
  - Neonatal pneumonia [Recovered/Resolved]
  - Patent ductus arteriosus [Recovered/Resolved]
  - Hypogammaglobulinaemia [Not Recovered/Not Resolved]
  - Hypoacusis [Recovered/Resolved]
  - Hepatic function abnormal [Recovered/Resolved]
  - Cytomegalovirus infection [Recovered/Resolved]
  - Small for dates baby [Recovered/Resolved]
  - Blood immunoglobulin G decreased [Recovered/Resolved]
